FAERS Safety Report 18616966 (Version 2)
Quarter: 2021Q3

REPORT INFORMATION
  Report Type: Report from Study
  Country: US (occurrence: US)
  Receive Date: 20201215
  Receipt Date: 20210827
  Transmission Date: 20211014
  Serious: Yes (Other)
  Sender: FDA-Public Use
  Company Number: US-ASTELLAS-2020US019889

PATIENT
  Sex: Male

DRUGS (1)
  1. ENZALUTAMIDE [Suspect]
     Active Substance: ENZALUTAMIDE
     Indication: HORMONE-REFRACTORY PROSTATE CANCER
     Route: 048
     Dates: start: 201905

REACTIONS (5)
  - Blood pressure increased [Unknown]
  - Dementia Alzheimer^s type [Unknown]
  - Balance disorder [Unknown]
  - Hypoacusis [Unknown]
  - Gait disturbance [Unknown]
